FAERS Safety Report 5985289-X (Version None)
Quarter: 2008Q4

REPORT INFORMATION
  Report Type: 
  Country: None (occurrence: None)
  Receive Date: 20081203
  Receipt Date: 20081121
  Transmission Date: 20090506
  Serious: Yes (Hospitalization)
  Sender: FDA-Public Use
  Company Number: DEP_00177_2008

PATIENT
  Age: 28 Year
  Sex: Female

DRUGS (1)
  1. METFORMIN HCL [Suspect]
     Indication: WEIGHT CONTROL
     Dosage: (39.5 G 1X ORAL), (500 MG BID ORAL)
     Route: 048

REACTIONS (10)
  - AGITATION [None]
  - ANION GAP INCREASED [None]
  - DISORIENTATION [None]
  - DRUG EXPOSURE DURING PREGNANCY [None]
  - GLASGOW COMA SCALE ABNORMAL [None]
  - HYPOGLYCAEMIA [None]
  - INCORRECT DOSE ADMINISTERED [None]
  - METABOLIC ACIDOSIS [None]
  - OEDEMA PERIPHERAL [None]
  - SUICIDE ATTEMPT [None]
